FAERS Safety Report 10645892 (Version 2)
Quarter: 2015Q2

REPORT INFORMATION
  Report Type: Spontaneous
  Country: US (occurrence: US)
  Receive Date: 20141211
  Receipt Date: 20150501
  Transmission Date: 20150821
  Serious: No
  Sender: FDA-Public Use
  Company Number: US-009507513-1411USA009462

PATIENT
  Sex: Female
  Weight: 119.73 kg

DRUGS (2)
  1. IMPLANON [Suspect]
     Active Substance: ETONOGESTREL
     Indication: CONTRACEPTION
     Dosage: UNK
     Route: 059
     Dates: start: 201402, end: 20141125
  2. IMPLANON [Suspect]
     Active Substance: ETONOGESTREL
     Dosage: UNK
     Route: 059
     Dates: start: 20141125

REACTIONS (12)
  - Anxiety [Unknown]
  - Nasal congestion [Unknown]
  - Dermatitis contact [Unknown]
  - Device breakage [Recovered/Resolved]
  - Implant site pain [Unknown]
  - Product quality issue [Unknown]
  - Nipple pain [Unknown]
  - Libido decreased [Unknown]
  - Migraine [Unknown]
  - Wisdom teeth removal [Unknown]
  - Attention deficit/hyperactivity disorder [Unknown]
  - Depression [Unknown]

NARRATIVE: CASE EVENT DATE: 201409
